FAERS Safety Report 5562941-1 (Version None)
Quarter: 2007Q4

REPORT INFORMATION
  Report Type: 
  Country: None (occurrence: None)
  Receive Date: 20071217
  Receipt Date: 20071205
  Transmission Date: 20080405
  Serious: Yes (Hospitalization, Other)
  Sender: FDA-Public Use
  Company Number: US-ROCHE-511387

PATIENT
  Age: 47 Year
  Sex: Female

DRUGS (5)
  1. PEG-INTERFERON A-2A (RO 25-8310) [Suspect]
     Indication: HEPATITIS C VIRUS
     Route: 065
     Dates: start: 20070330
  2. PEG-INTERFERON A-2A (RO 25-8310) [Suspect]
     Route: 065
  3. PEG-INTERFERON A-2A (RO 25-8310) [Suspect]
     Route: 065
  4. RIBAVIRIN [Suspect]
     Indication: HEPATITIS C VIRUS
     Route: 065
     Dates: start: 20070330
  5. SYNTHROID [Concomitant]
     Indication: THYROID DISORDER

REACTIONS (5)
  - DEAFNESS [None]
  - DELUSION [None]
  - DRUG ADMINISTRATION ERROR [None]
  - GASTROENTERITIS [None]
  - HYPERTHYROIDISM [None]
